FAERS Safety Report 4595065-0 (Version None)
Quarter: 2005Q1

REPORT INFORMATION
  Report Type: 
  Country: None (occurrence: None)
  Receive Date: 20050223
  Receipt Date: 20050210
  Transmission Date: 20050727
  Serious: Yes (Death, Hospitalization, Other)
  Sender: FDA-Public Use
  Company Number: 2004040658

PATIENT
  Age: 42 Year
  Sex: Female

DRUGS (4)
  1. GEODON [Suspect]
     Indication: ANXIETY
     Dosage: (2 IN 1 D), ORAL
     Route: 048
  2. GEODON [Suspect]
     Indication: BIPOLAR DISORDER
     Dosage: (2 IN 1 D), ORAL
     Route: 048
  3. GEODON [Suspect]
     Indication: DEPRESSION
     Dosage: (2 IN 1 D), ORAL
     Route: 048
  4. TRAZODONE (TRAZODONE) [Concomitant]

REACTIONS (6)
  - BETA HAEMOLYTIC STREPTOCOCCAL INFECTION [None]
  - CARDIAC ARREST [None]
  - CARDIO-RESPIRATORY ARREST [None]
  - ELECTROCARDIOGRAM QT CORRECTED INTERVAL PROLONGED [None]
  - PYREXIA [None]
  - VENTRICULAR EXTRASYSTOLES [None]
